FAERS Safety Report 7981743-X (Version None)
Quarter: 2011Q4

REPORT INFORMATION
  Report Type: 
  Country: None (occurrence: None)
  Receive Date: 20111213
  Receipt Date: 20111209
  Transmission Date: 20120403
  Serious: Yes (Other)
  Sender: FDA-Public Use
  Company Number: 1000025135

PATIENT
  Age: 49 Year
  Sex: Male

DRUGS (5)
  1. ALBUTEROL (ALBUTEROL) (ALBUTEROL) [Concomitant]
  2. VIIBRYD [Suspect]
     Indication: DEPRESSION
     Dosage: 5 MG (5 MG, 1 IN 1 D), ORAL
     Route: 048
     Dates: start: 20111029, end: 20111101
  3. VIIBRYD [Suspect]
     Indication: ANXIETY
     Dosage: 5 MG (5 MG, 1 IN 1 D), ORAL
     Route: 048
     Dates: start: 20111029, end: 20111101
  4. DEPLIN (CALCIUM LEVOMEFOLATE) (CALCIUM LEVOMEFOLATE) [Concomitant]
  5. MULTIVITAMIN (MULTIVITAMIN) (MULTIVITAMIN) [Concomitant]

REACTIONS (7)
  - GASTRIC DISORDER [None]
  - ASTHMA [None]
  - DYSPNOEA [None]
  - DEREALISATION [None]
  - DIZZINESS [None]
  - FEELING ABNORMAL [None]
  - SWELLING [None]
